FAERS Safety Report 5761206-2 (Version None)
Quarter: 2008Q2

REPORT INFORMATION
  Report Type: 
  Country: None (occurrence: None)
  Receive Date: 20080606
  Receipt Date: 20080526
  Transmission Date: 20081010
  Serious: Yes (Hospitalization, Other)
  Sender: FDA-Public Use
  Company Number: PHHY2008FR09368

PATIENT
  Sex: Female

DRUGS (3)
  1. VOLTAREN [Suspect]
     Indication: ARTHRALGIA
  2. ASPIRIN [Concomitant]
  3. STRUCTUM [Concomitant]

REACTIONS (16)
  - ALANINE AMINOTRANSFERASE INCREASED [None]
  - ARTHRALGIA [None]
  - ASPARTATE AMINOTRANSFERASE INCREASED [None]
  - BLOOD LACTATE DEHYDROGENASE INCREASED [None]
  - CYTOLYTIC HEPATITIS [None]
  - DERMATITIS EXFOLIATIVE [None]
  - DIARRHOEA [None]
  - ERYTHEMA [None]
  - GAMMA-GLUTAMYLTRANSFERASE INCREASED [None]
  - GASTROENTERITIS VIRAL [None]
  - ICHTHYOSIS [None]
  - PURPURA [None]
  - PYREXIA [None]
  - THROMBOCYTOPENIA [None]
  - VIRAL INFECTION [None]
  - VOMITING [None]
